FAERS Safety Report 15727860 (Version 2)
Quarter: 2019Q1

REPORT INFORMATION
  Report Type: Spontaneous
  Country: US (occurrence: US)
  Receive Date: 20181217
  Receipt Date: 20190121
  Transmission Date: 20190417
  Serious: No
  Sender: FDA-Public Use
  Company Number: US-PFIZER INC-2018514346

PATIENT
  Age: 74 Year
  Sex: Female
  Weight: 58 kg

DRUGS (2)
  1. ESTRING [Suspect]
     Active Substance: ESTRADIOL
     Indication: MENOPAUSE
     Dosage: 2 MG, UNK (SQUEEZE RING AND INSERT VAGINALLY)
     Route: 067
     Dates: start: 20181203
  2. ESTRING [Suspect]
     Active Substance: ESTRADIOL
     Indication: VULVOVAGINAL DRYNESS

REACTIONS (4)
  - Metrorrhagia [Unknown]
  - Product complaint [Unknown]
  - Poor quality product administered [Unknown]
  - Discomfort [Unknown]

NARRATIVE: CASE EVENT DATE: 201812
